FAERS Safety Report 14913825 (Version 1)
Quarter: 2018Q2

REPORT INFORMATION
  Report Type: Spontaneous
  Country: US (occurrence: US)
  Receive Date: 20180518
  Receipt Date: 20180518
  Transmission Date: 20180711
  Serious: Yes (Life-Threatening, Other)
  Sender: FDA-Public Use
  Company Number: US-COOPERSURGICAL, INC.-US-2018CPS031909

PATIENT
  Sex: Female

DRUGS (1)
  1. PARAGARD T 380A [Suspect]
     Active Substance: COPPER
     Indication: PRODUCT USED FOR UNKNOWN INDICATION
     Dosage: UNK
     Route: 015

REACTIONS (5)
  - Drug ineffective [Unknown]
  - Ruptured ectopic pregnancy [Unknown]
  - Intra-abdominal haemorrhage [Unknown]
  - Device failure [Unknown]
  - Pregnancy with contraceptive device [Unknown]
